FAERS Safety Report 5028424-2 (Version None)
Quarter: 2006Q2

REPORT INFORMATION
  Report Type: 
  Country: None (occurrence: None)
  Receive Date: 20060617
  Receipt Date: 20060613
  Transmission Date: 20061013
  Serious: Yes (Other)
  Sender: FDA-Public Use
  Company Number: FR-BRISTOL-MYERS SQUIBB COMPANY-13412507

PATIENT
  Age: 81 Year
  Sex: Female
  Weight: 60 kg

DRUGS (16)
  1. COUMADIN [Suspect]
     Route: 048
     Dates: start: 20060402, end: 20060504
  2. PLAVIX [Suspect]
     Dates: start: 20060506, end: 20060510
  3. NORSET [Suspect]
     Dates: start: 20060323, end: 20060510
  4. FLUDEX [Suspect]
     Dates: start: 20060412, end: 20060510
  5. OFLOCET [Suspect]
     Dates: start: 20060427, end: 20060508
  6. TAHOR [Suspect]
  7. PANTOPRAZOLE SODIUM [Suspect]
  8. LASILIX [Suspect]
  9. SEROPRAM [Suspect]
  10. TRIATEC [Concomitant]
  11. DIGOXIN [Concomitant]
  12. DIFFU-K [Concomitant]
  13. PARACETAMOL [Concomitant]
  14. HEPARIN [Concomitant]
  15. CALCIPARINE [Concomitant]
  16. LOVENOX [Concomitant]

REACTIONS (1)
  - AGRANULOCYTOSIS [None]
